FAERS Safety Report 4829192-7 (Version None)
Quarter: 2005Q4

REPORT INFORMATION
  Report Type: 
  Country: None (occurrence: None)
  Receive Date: 20051028
  Receipt Date: 20050912
  Transmission Date: 20060501
  Serious: Yes (Other)
  Sender: FDA-Public Use
  Company Number: US_0503113608

PATIENT
  Age: 34 Year
  Sex: Female

DRUGS (31)
  1. ZYPREXA [Suspect]
     Indication: ANXIETY
     Dosage: 10 MG AT BEDTIME
     Dates: start: 20030825, end: 20031127
  2. SYMBYAX [Suspect]
     Indication: ANXIETY
     Dates: start: 20040722
  3. SEROQUEL [Concomitant]
  4. TOPROL XL (METOPROL SUCCINATE) [Concomitant]
  5. ALPRAZOLAM [Concomitant]
  6. ZITHROMAX [Concomitant]
  7. TUSSIONEX [Concomitant]
  8. MIRALAX [Concomitant]
  9. VERAPAMIL [Concomitant]
  10. CLARITIN-D [Concomitant]
  11. HYDROCODONE W/APAP [Concomitant]
  12. SPIRONOLACTONE [Concomitant]
  13. ADVAIR DISKUS 100/50 [Concomitant]
  14. MEPROZINE [Concomitant]
  15. OXYCODONE [Concomitant]
  16. PROMETHEGAN (PROMETHAZINE) [Concomitant]
  17. MYTUSSIN (GUAIFENESIN) [Concomitant]
  18. HYDROCHLOROTHIAZIDE W/TRIAMTERENE [Concomitant]
  19. LEVAQUIN [Concomitant]
  20. METRONIDAZOLE [Concomitant]
  21. VALTREX [Concomitant]
  22. CYCLOBENZAPRINE HCL [Concomitant]
  23. ACCUPRIL [Concomitant]
  24. SULFAMETHOXAZOLE [Concomitant]
  25. PENTAZOCINE LACTATE [Concomitant]
  26. NAPROXEN [Concomitant]
  27. AZMACORT [Concomitant]
  28. CEPHALEXIN [Concomitant]
  29. FLUTUSS HC [Concomitant]
  30. NEXIUM [Concomitant]
  31. ALBUTEROL [Concomitant]

REACTIONS (3)
  - DIABETES MELLITUS [None]
  - HEPATIC STEATOSIS [None]
  - PANCREATITIS [None]
